FAERS Safety Report 24794751 (Version 5)
Quarter: 2025Q3

REPORT INFORMATION
  Report Type: Spontaneous
  Country: CA (occurrence: CA)
  Receive Date: 20241231
  Receipt Date: 20250730
  Transmission Date: 20251021
  Serious: Yes (Death)
  Sender: PFIZER
  Company Number: CA-002147023-NVSC2024CA243856

PATIENT
  Age: 43 Year
  Sex: Female
  Weight: 68 kg

DRUGS (180)
  1. ETANERCEPT [Suspect]
     Active Substance: ETANERCEPT
     Indication: Rheumatoid arthritis
     Route: 058
  2. ETANERCEPT [Suspect]
     Active Substance: ETANERCEPT
     Route: 058
  3. RITUXIMAB [Suspect]
     Active Substance: RITUXIMAB
     Indication: Rheumatoid arthritis
     Route: 040
  4. RITUXIMAB [Suspect]
     Active Substance: RITUXIMAB
     Route: 042
  5. LEUCOVORIN CALCIUM [Suspect]
     Active Substance: LEUCOVORIN CALCIUM
     Route: 065
  6. BUPIVACAINE HYDROCHLORIDE [Suspect]
     Active Substance: BUPIVACAINE HYDROCHLORIDE
     Indication: Rheumatoid arthritis
     Route: 065
  7. HYDROCORTISONE [Suspect]
     Active Substance: HYDROCORTISONE
     Indication: Rheumatoid arthritis
     Route: 065
  8. HYDROCORTISONE [Suspect]
     Active Substance: HYDROCORTISONE
     Route: 048
  9. HYDROCORTISONE [Suspect]
     Active Substance: HYDROCORTISONE
     Route: 048
  10. HYDROCORTISONE [Suspect]
     Active Substance: HYDROCORTISONE
     Route: 065
  11. HYDROMORPHONE HYDROCHLORIDE [Suspect]
     Active Substance: HYDROMORPHONE HYDROCHLORIDE
     Route: 065
  12. METHOTREXATE SODIUM [Suspect]
     Active Substance: METHOTREXATE SODIUM
     Indication: Rheumatoid arthritis
     Route: 065
  13. METHOTREXATE SODIUM [Suspect]
     Active Substance: METHOTREXATE SODIUM
     Route: 016
  14. METHOTREXATE SODIUM [Suspect]
     Active Substance: METHOTREXATE SODIUM
     Route: 048
  15. METHOTREXATE SODIUM [Suspect]
     Active Substance: METHOTREXATE SODIUM
     Route: 048
  16. METHOTREXATE SODIUM [Suspect]
     Active Substance: METHOTREXATE SODIUM
     Route: 048
  17. METHOTREXATE SODIUM [Suspect]
     Active Substance: METHOTREXATE SODIUM
     Route: 065
  18. METHOTREXATE SODIUM [Suspect]
     Active Substance: METHOTREXATE SODIUM
     Route: 058
  19. METHOTREXATE SODIUM [Suspect]
     Active Substance: METHOTREXATE SODIUM
     Dosage: 20 MG, QD
     Route: 065
  20. METHOTREXATE SODIUM [Suspect]
     Active Substance: METHOTREXATE SODIUM
  21. TOFACITINIB CITRATE [Suspect]
     Active Substance: TOFACITINIB CITRATE
     Indication: Rheumatoid arthritis
     Route: 065
  22. SOLU-MEDROL [Suspect]
     Active Substance: METHYLPREDNISOLONE SODIUM SUCCINATE
     Route: 048
  23. SULFASALAZINE [Suspect]
     Active Substance: SULFASALAZINE
     Indication: Rheumatoid arthritis
     Dosage: 300 MG, QD
     Route: 065
  24. SULFASALAZINE [Suspect]
     Active Substance: SULFASALAZINE
     Route: 058
  25. SULFASALAZINE [Suspect]
     Active Substance: SULFASALAZINE
     Dosage: 1000 MG, BID
     Route: 048
  26. SULFASALAZINE [Suspect]
     Active Substance: SULFASALAZINE
     Route: 058
  27. SULFASALAZINE [Suspect]
     Active Substance: SULFASALAZINE
     Route: 058
  28. SULFASALAZINE [Suspect]
     Active Substance: SULFASALAZINE
     Route: 058
  29. SULFASALAZINE [Suspect]
     Active Substance: SULFASALAZINE
     Route: 058
  30. SULFASALAZINE [Suspect]
     Active Substance: SULFASALAZINE
     Route: 058
  31. SULFASALAZINE [Suspect]
     Active Substance: SULFASALAZINE
     Dosage: 300 MG, QD
     Route: 065
  32. AIMOVIG [Suspect]
     Active Substance: ERENUMAB-AOOE
  33. OTEZLA [Suspect]
     Active Substance: APREMILAST
  34. OTEZLA [Suspect]
     Active Substance: APREMILAST
     Dosage: 6 MG, QD
  35. OTEZLA [Suspect]
     Active Substance: APREMILAST
     Dosage: 6 MG, QD
     Route: 048
  36. OTEZLA [Suspect]
     Active Substance: APREMILAST
     Dosage: 3 MG, BID
  37. OTEZLA [Suspect]
     Active Substance: APREMILAST
     Dosage: 3 MG, BID
     Route: 065
  38. OTEZLA [Suspect]
     Active Substance: APREMILAST
     Dosage: 3 MG, BID
     Route: 048
  39. DICLOFENAC [Suspect]
     Active Substance: DICLOFENAC
     Route: 031
  40. DICLOFENAC [Suspect]
     Active Substance: DICLOFENAC
  41. ALENDRONIC ACID [Suspect]
     Active Substance: ALENDRONIC ACID
     Indication: Rheumatoid arthritis
     Route: 065
  42. ALENDRONIC ACID [Suspect]
     Active Substance: ALENDRONIC ACID
     Route: 016
  43. CALCIUM [Suspect]
     Active Substance: CALCIUM
  44. CANDESARTAN [Suspect]
     Active Substance: CANDESARTAN
     Indication: Rheumatoid arthritis
     Route: 065
  45. CANDESARTAN [Suspect]
     Active Substance: CANDESARTAN
     Indication: Migraine
  46. COSENTYX [Suspect]
     Active Substance: SECUKINUMAB
     Route: 065
  47. LEFLUNOMIDE [Suspect]
     Active Substance: LEFLUNOMIDE
     Indication: Rheumatoid arthritis
     Dosage: 20 MG, QD
     Route: 065
  48. LEFLUNOMIDE [Suspect]
     Active Substance: LEFLUNOMIDE
     Dosage: 10 MG, QD
     Route: 065
  49. MYCOPHENOLATE MOFETIL [Suspect]
     Active Substance: MYCOPHENOLATE MOFETIL
     Route: 065
  50. OXYCODONE [Suspect]
     Active Substance: OXYCODONE
     Route: 065
  51. PANTOPRAZOLE [Suspect]
     Active Substance: PANTOPRAZOLE
     Route: 016
  52. PANTOPRAZOLE [Suspect]
     Active Substance: PANTOPRAZOLE
     Route: 065
  53. QUETIAPINE [Suspect]
     Active Substance: QUETIAPINE
     Indication: Off label use
  54. QUETIAPINE [Suspect]
     Active Substance: QUETIAPINE
  55. ACETAMINOPHEN [Suspect]
     Active Substance: ACETAMINOPHEN
     Indication: Rheumatoid arthritis
  56. ACTEMRA [Suspect]
     Active Substance: TOCILIZUMAB
     Route: 065
  57. ACTEMRA [Suspect]
     Active Substance: TOCILIZUMAB
     Route: 040
  58. ACTEMRA [Suspect]
     Active Substance: TOCILIZUMAB
     Route: 058
  59. ACTEMRA [Suspect]
     Active Substance: TOCILIZUMAB
     Route: 058
  60. ACTEMRA [Suspect]
     Active Substance: TOCILIZUMAB
     Route: 016
  61. ACTEMRA [Suspect]
     Active Substance: TOCILIZUMAB
     Route: 058
  62. ACTEMRA [Suspect]
     Active Substance: TOCILIZUMAB
     Route: 065
  63. ACTEMRA [Suspect]
     Active Substance: TOCILIZUMAB
     Route: 058
  64. ACTEMRA [Suspect]
     Active Substance: TOCILIZUMAB
     Route: 058
  65. ACTEMRA [Suspect]
     Active Substance: TOCILIZUMAB
     Route: 016
  66. ACTEMRA [Suspect]
     Active Substance: TOCILIZUMAB
     Route: 040
  67. ACTEMRA [Suspect]
     Active Substance: TOCILIZUMAB
     Route: 058
  68. ALFACALCIDOL [Suspect]
     Active Substance: ALFACALCIDOL
     Route: 065
  69. PREDNISONE [Suspect]
     Active Substance: PREDNISONE
     Indication: Rheumatoid arthritis
     Route: 065
  70. ATOMOXETINE HYDROCHLORIDE [Suspect]
     Active Substance: ATOMOXETINE HYDROCHLORIDE
     Route: 065
  71. IMURAN [Suspect]
     Active Substance: AZATHIOPRINE
     Indication: Rheumatoid arthritis
     Route: 065
  72. IMURAN [Suspect]
     Active Substance: AZATHIOPRINE
     Route: 048
  73. IMURAN [Suspect]
     Active Substance: AZATHIOPRINE
     Route: 016
  74. IMURAN [Suspect]
     Active Substance: AZATHIOPRINE
     Route: 065
  75. IMURAN [Suspect]
     Active Substance: AZATHIOPRINE
     Route: 048
  76. IMURAN [Suspect]
     Active Substance: AZATHIOPRINE
     Route: 016
  77. BERINERT [Suspect]
     Active Substance: HUMAN C1-ESTERASE INHIBITOR
     Route: 065
  78. BETAMETHASONE [Suspect]
     Active Substance: BETAMETHASONE
     Route: 065
  79. BOTULINUM TOXIN TYPE A [Suspect]
     Active Substance: BOTULINUM TOXIN TYPE A
     Route: 030
  80. BUPRENORPHINE [Suspect]
     Active Substance: BUPRENORPHINE
     Route: 065
  81. CALCIUM GLUBIONATE [Suspect]
     Active Substance: CALCIUM GLUBIONATE
     Indication: Rheumatoid arthritis
     Route: 065
  82. CELECOXIB [Suspect]
     Active Substance: CELECOXIB
     Indication: Rheumatoid arthritis
     Dosage: UNK UNK, BID
     Route: 065
  83. CELECOXIB [Suspect]
     Active Substance: CELECOXIB
     Dosage: UNK, QD (1 EVERY 1 DAYS)
     Route: 065
  84. CELECOXIB [Suspect]
     Active Substance: CELECOXIB
     Route: 065
  85. CELECOXIB [Suspect]
     Active Substance: CELECOXIB
     Dosage: UNK UNK, BID
     Route: 065
  86. CELECOXIB [Suspect]
     Active Substance: CELECOXIB
     Route: 065
  87. CELECOXIB [Suspect]
     Active Substance: CELECOXIB
     Route: 065
  88. CETIRIZINE [Suspect]
     Active Substance: CETIRIZINE HYDROCHLORIDE
     Indication: Rheumatoid arthritis
     Route: 048
  89. CETIRIZINE [Suspect]
     Active Substance: CETIRIZINE HYDROCHLORIDE
     Route: 048
  90. CHLORHEXIDINE [Suspect]
     Active Substance: CHLORHEXIDINE
     Route: 061
  91. CHLORHEXIDINE [Suspect]
     Active Substance: CHLORHEXIDINE
     Route: 002
  92. CHOLECALCIFEROL [Suspect]
     Active Substance: CHOLECALCIFEROL
     Route: 016
  93. CIMZIA [Suspect]
     Active Substance: CERTOLIZUMAB PEGOL
     Indication: Rheumatoid arthritis
     Route: 065
  94. CIMZIA [Suspect]
     Active Substance: CERTOLIZUMAB PEGOL
     Indication: Psoriasis
     Route: 058
  95. CIMZIA [Suspect]
     Active Substance: CERTOLIZUMAB PEGOL
     Route: 058
  96. CIMZIA [Suspect]
     Active Substance: CERTOLIZUMAB PEGOL
     Route: 058
  97. CIMZIA [Suspect]
     Active Substance: CERTOLIZUMAB PEGOL
     Route: 058
  98. CIMZIA [Suspect]
     Active Substance: CERTOLIZUMAB PEGOL
     Route: 058
  99. CIMZIA [Suspect]
     Active Substance: CERTOLIZUMAB PEGOL
     Route: 065
  100. CIMZIA [Suspect]
     Active Substance: CERTOLIZUMAB PEGOL
     Route: 058
  101. CORTISONE ACETATE [Suspect]
     Active Substance: CORTISONE ACETATE
     Indication: Rheumatoid arthritis
     Route: 065
  102. CORTISONE ACETATE [Suspect]
     Active Substance: CORTISONE ACETATE
     Route: 065
  103. CORTISONE ACETATE [Suspect]
     Active Substance: CORTISONE ACETATE
     Route: 065
  104. CORTISONE ACETATE [Suspect]
     Active Substance: CORTISONE ACETATE
     Indication: Rheumatoid arthritis
  105. CORTISONE ACETATE [Suspect]
     Active Substance: CORTISONE ACETATE
  106. CYCLOBENZAPRINE [Suspect]
     Active Substance: CYCLOBENZAPRINE
     Dosage: 1 DOSAGE FORM, QD
     Route: 065
  107. DESOXIMETASONE [Suspect]
     Active Substance: DESOXIMETASONE
     Indication: Rheumatoid arthritis
     Route: 065
  108. DESOXIMETASONE [Suspect]
     Active Substance: DESOXIMETASONE
     Route: 048
  109. DOMPERIDONE [Suspect]
     Active Substance: DOMPERIDONE
     Route: 065
  110. DOXYCYCLINE HYCLATE [Suspect]
     Active Substance: DOXYCYCLINE HYCLATE
     Route: 065
  111. ERGOCALCIFEROL [Suspect]
     Active Substance: ERGOCALCIFEROL
     Route: 065
  112. ERGOCALCIFEROL [Suspect]
     Active Substance: ERGOCALCIFEROL
     Route: 065
  113. FETZIMA [Suspect]
     Active Substance: LEVOMILNACIPRAN HYDROCHLORIDE
     Route: 065
  114. FINACEA [Suspect]
     Active Substance: AZELAIC ACID
     Route: 065
  115. FLUTICASONE [Suspect]
     Active Substance: FLUTICASONE
     Route: 065
  116. FOLIC ACID [Suspect]
     Active Substance: FOLIC ACID
     Indication: Rheumatoid arthritis
     Route: 065
  117. HUMIRA [Suspect]
     Active Substance: ADALIMUMAB
     Indication: Rheumatoid arthritis
     Route: 058
  118. HUMIRA [Suspect]
     Active Substance: ADALIMUMAB
     Route: 058
  119. HUMIRA [Suspect]
     Active Substance: ADALIMUMAB
     Route: 065
  120. HYDROXYCHLOROQUINE [Suspect]
     Active Substance: HYDROXYCHLOROQUINE
     Indication: Systemic lupus erythematosus
     Dosage: 400 MG, 1X/DAY
     Route: 065
  121. HYDROXYCHLOROQUINE [Suspect]
     Active Substance: HYDROXYCHLOROQUINE
     Indication: Rheumatoid arthritis
  122. KEVZARA [Suspect]
     Active Substance: SARILUMAB
     Indication: Rheumatoid arthritis
     Route: 065
  123. LAMOTRIGINE [Suspect]
     Active Substance: LAMOTRIGINE
     Route: 048
  124. LAMOTRIGINE [Suspect]
     Active Substance: LAMOTRIGINE
     Route: 048
  125. CLIOQUINOL\FLUMETHASONE [Suspect]
     Active Substance: CLIOQUINOL\FLUMETHASONE
     Indication: Rheumatoid arthritis
     Route: 065
  126. LYRICA [Suspect]
     Active Substance: PREGABALIN
     Route: 065
  127. LYRICA [Suspect]
     Active Substance: PREGABALIN
     Route: 065
  128. MESALAMINE [Suspect]
     Active Substance: MESALAMINE
     Indication: Crohn^s disease
     Route: 065
  129. MINOCYCLINE [Suspect]
     Active Substance: MINOCYCLINE HYDROCHLORIDE
     Indication: Rheumatoid arthritis
     Route: 065
  130. MINOCYCLINE [Suspect]
     Active Substance: MINOCYCLINE HYDROCHLORIDE
     Route: 065
  131. MYRBETRIQ [Suspect]
     Active Substance: MIRABEGRON
     Dosage: 1 DOSAGE FORM, QD (EXTENDED- RELEASE)
     Route: 048
  132. NAPROXEN SODIUM [Suspect]
     Active Substance: NAPROXEN SODIUM
     Indication: Rheumatoid arthritis
     Dosage: 1000 MG, QD (500 MG, BID)
     Route: 065
  133. NUCALA [Suspect]
     Active Substance: MEPOLIZUMAB
     Route: 065
  134. ORENCIA [Suspect]
     Active Substance: ABATACEPT
     Indication: Rheumatoid arthritis
     Route: 058
  135. ORENCIA [Suspect]
     Active Substance: ABATACEPT
     Route: 040
  136. PERCOCET [Suspect]
     Active Substance: ACETAMINOPHEN\OXYCODONE HYDROCHLORIDE
     Route: 065
  137. PHENYLEPHRINE HYDROCHLORIDE [Suspect]
     Active Substance: PHENYLEPHRINE HYDROCHLORIDE
     Route: 065
  138. PHTHALYLSULFATHIAZOLE [Suspect]
     Active Substance: PHTHALYLSULFATHIAZOLE
     Indication: Rheumatoid arthritis
     Route: 065
  139. PHTHALYLSULFATHIAZOLE [Suspect]
     Active Substance: PHTHALYLSULFATHIAZOLE
     Dosage: 500 MG, QD
     Route: 065
  140. PHTHALYLSULFATHIAZOLE [Suspect]
     Active Substance: PHTHALYLSULFATHIAZOLE
     Route: 065
  141. PREDNISONE [Suspect]
     Active Substance: PREDNISONE
     Indication: Rheumatoid arthritis
     Route: 048
  142. PREDNISONE [Suspect]
     Active Substance: PREDNISONE
     Route: 048
  143. PREDNISONE [Suspect]
     Active Substance: PREDNISONE
     Route: 048
  144. PREDNISONE [Suspect]
     Active Substance: PREDNISONE
     Route: 065
  145. PREGABALIN [Suspect]
     Active Substance: PREGABALIN
     Route: 065
  146. PSEUDOEPHEDRINE [Suspect]
     Active Substance: PSEUDOEPHEDRINE
     Indication: Rheumatoid arthritis
     Route: 065
  147. PSEUDOEPHEDRINE [Suspect]
     Active Substance: PSEUDOEPHEDRINE
     Route: 065
  148. PSEUDOEPHEDRINE [Suspect]
     Active Substance: PSEUDOEPHEDRINE
     Route: 065
  149. RAMIPRIL [Suspect]
     Active Substance: RAMIPRIL
     Indication: Rheumatoid arthritis
     Route: 016
  150. RANITIDINE [Suspect]
     Active Substance: RANITIDINE
     Route: 058
  151. RANITIDINE [Suspect]
     Active Substance: RANITIDINE
     Route: 040
  152. CETIRIZINE HYDROCHLORIDE\PSEUDOEPHEDRINE HYDROCHLORIDE [Suspect]
     Active Substance: CETIRIZINE HYDROCHLORIDE\PSEUDOEPHEDRINE HYDROCHLORIDE
     Indication: Rheumatoid arthritis
     Route: 065
  153. CETIRIZINE HYDROCHLORIDE\PSEUDOEPHEDRINE HYDROCHLORIDE [Suspect]
     Active Substance: CETIRIZINE HYDROCHLORIDE\PSEUDOEPHEDRINE HYDROCHLORIDE
     Route: 065
  154. REMICADE [Suspect]
     Active Substance: INFLIXIMAB
     Indication: Rheumatoid arthritis
     Route: 040
  155. REMICADE [Suspect]
     Active Substance: INFLIXIMAB
     Route: 065
  156. REMICADE [Suspect]
     Active Substance: INFLIXIMAB
     Route: 065
  157. REMICADE [Suspect]
     Active Substance: INFLIXIMAB
     Route: 040
  158. RITUXAN [Suspect]
     Active Substance: RITUXIMAB
     Indication: Rheumatoid arthritis
     Route: 058
  159. DIETARY SUPPLEMENT\HERBALS [Suspect]
     Active Substance: DIETARY SUPPLEMENT\HERBALS
     Route: 048
  160. SIMPONI [Suspect]
     Active Substance: GOLIMUMAB
     Indication: Rheumatoid arthritis
     Route: 058
  161. SIRUKUMAB [Suspect]
     Active Substance: SIRUKUMAB
     Route: 065
  162. TOPIRAMATE [Suspect]
     Active Substance: TOPIRAMATE
     Dosage: 25 MG, QD
     Route: 065
  163. TOPIRAMATE [Suspect]
     Active Substance: TOPIRAMATE
     Dosage: 3 MG, QD
     Route: 065
  164. TRAZODONE [Suspect]
     Active Substance: TRAZODONE HYDROCHLORIDE
     Route: 065
  165. TRETINOIN [Suspect]
     Active Substance: TRETINOIN
     Route: 065
  166. VITAMIN C [Suspect]
     Active Substance: ASCORBIC ACID
     Route: 065
  167. VITAMIN C [Suspect]
     Active Substance: ASCORBIC ACID
     Route: 065
  168. DICLOFENAC [Suspect]
     Active Substance: DICLOFENAC
     Route: 031
  169. AZATHIOPRINE [Suspect]
     Active Substance: AZATHIOPRINE
  170. ACETAMINOPHEN\TRAMADOL HYDROCHLORIDE [Suspect]
     Active Substance: ACETAMINOPHEN\TRAMADOL HYDROCHLORIDE
  171. PREDNISOLONE [Suspect]
     Active Substance: PREDNISOLONE
  172. HYDROCORTISONE [Suspect]
     Active Substance: HYDROCORTISONE
  173. LEFLUNOMIDE [Suspect]
     Active Substance: LEFLUNOMIDE
  174. MYCOPHENOLATE MOFETIL [Suspect]
     Active Substance: MYCOPHENOLATE MOFETIL
  175. LORAZEPAM [Concomitant]
     Active Substance: LORAZEPAM
     Route: 065
  176. ATIVAN [Concomitant]
     Active Substance: LORAZEPAM
     Route: 065
  177. CODEINE PHOSPHATE [Concomitant]
     Active Substance: CODEINE PHOSPHATE
     Route: 065
  178. VASCEPA [Concomitant]
     Active Substance: ICOSAPENT ETHYL
     Route: 065
  179. ZESTRIL [Concomitant]
     Active Substance: LISINOPRIL
     Route: 065
  180. DESOGESTREL\ETHINYL ESTRADIOL [Concomitant]
     Active Substance: DESOGESTREL\ETHINYL ESTRADIOL
     Route: 065

REACTIONS (4)
  - Maternal exposure during pregnancy [Fatal]
  - Off label use [Fatal]
  - Condition aggravated [Fatal]
  - Overlap syndrome [Fatal]
